FAERS Safety Report 24940441 (Version 5)
Quarter: 2025Q3

REPORT INFORMATION
  Report Type: Spontaneous
  Country: CA (occurrence: CA)
  Receive Date: 20250207
  Receipt Date: 20250721
  Transmission Date: 20251020
  Serious: Yes (Other)
  Sender: TEVA
  Company Number: CA-ASTRAZENECA-202501GLO024612CA

PATIENT
  Age: 56 Year
  Sex: Female

DRUGS (16)
  1. CANDESARTAN [Suspect]
     Active Substance: CANDESARTAN
     Indication: Dyspareunia
     Route: 065
  2. CANDESARTAN [Suspect]
     Active Substance: CANDESARTAN
     Indication: Dyspareunia
     Route: 065
  3. DICLOFENAC SODIUM\MISOPROSTOL [Suspect]
     Active Substance: DICLOFENAC SODIUM\MISOPROSTOL
     Indication: Lichen planus
     Route: 065
  4. PERINDOPRIL [Suspect]
     Active Substance: PERINDOPRIL
     Indication: Lichen planus
     Route: 065
  5. PANTOPRAZOLE [Suspect]
     Active Substance: PANTOPRAZOLE
     Indication: Lichen planus
     Route: 065
  6. INDAPAMIDE\PERINDOPRIL ERBUMINE [Suspect]
     Active Substance: INDAPAMIDE\PERINDOPRIL ERBUMINE
     Indication: Lichen planus
     Route: 065
  7. ATENOLOL [Suspect]
     Active Substance: ATENOLOL
     Indication: Lichen planus
     Route: 065
  8. ATENOLOL [Suspect]
     Active Substance: ATENOLOL
     Indication: Lichen planus
     Route: 065
  9. MISOPROSTOL [Suspect]
     Active Substance: MISOPROSTOL
     Indication: Dyspareunia
     Route: 065
  10. MISOPROSTOL [Suspect]
     Active Substance: MISOPROSTOL
     Indication: Dyspareunia
     Route: 065
  11. HYDROCHLOROTHIAZIDE [Suspect]
     Active Substance: HYDROCHLOROTHIAZIDE
     Indication: Lichen planus
     Route: 065
  12. HYDROCHLOROTHIAZIDE [Suspect]
     Active Substance: HYDROCHLOROTHIAZIDE
     Indication: Lichen planus
     Route: 065
  13. DICLOFENAC SODIUM [Suspect]
     Active Substance: DICLOFENAC SODIUM
     Indication: Lichen planus
     Route: 065
  14. ESTROGENS [Suspect]
     Active Substance: ESTROGENS
     Indication: Lichen planus
     Route: 061
  15. HYDROCHLOROTHIAZIDE [Suspect]
     Active Substance: HYDROCHLOROTHIAZIDE
     Indication: Lichen planus
     Route: 065
  16. ATENOLOL [Suspect]
     Active Substance: ATENOLOL
     Indication: Lichen planus
     Route: 065

REACTIONS (5)
  - Lichen planus [Unknown]
  - Off label use [Unknown]
  - Off label use [Unknown]
  - Drug ineffective [Unknown]
  - Condition aggravated [Unknown]
